FAERS Safety Report 23897670 (Version 2)
Quarter: 2024Q2

REPORT INFORMATION
  Report Type: Spontaneous
  Country: JP (occurrence: JP)
  Receive Date: 20240524
  Receipt Date: 20240602
  Transmission Date: 20240716
  Serious: Yes (Life-Threatening, Other)
  Sender: FDA-Public Use
  Company Number: JP-ONO-2024JP010116

PATIENT
  Age: 75 Year
  Sex: Female

DRUGS (4)
  1. KYPROLIS [Suspect]
     Active Substance: CARFILZOMIB
     Indication: Plasma cell myeloma
     Dosage: 31 MILLIGRAM (31 MG, Q84H)
     Route: 041
     Dates: start: 20240501, end: 20240502
  2. KYPROLIS [Suspect]
     Active Substance: CARFILZOMIB
     Dosage: 88 MILLIGRAM (88 MG, Q84H)
     Route: 065
     Dates: start: 20240508, end: 20240508
  3. DEXAMETHASONE [Concomitant]
     Active Substance: DEXAMETHASONE
     Indication: Plasma cell myeloma
     Dosage: UNK
     Route: 065
     Dates: start: 20240501
  4. DARATUMUMAB [Concomitant]
     Active Substance: DARATUMUMAB
     Indication: Plasma cell myeloma
     Dosage: UNK
     Route: 065
     Dates: start: 20240501

REACTIONS (5)
  - Cardiac arrest [Unknown]
  - Atrial fibrillation [Unknown]
  - Fibrin D dimer increased [Unknown]
  - Tachycardia [Unknown]
  - Palpitations [Unknown]

NARRATIVE: CASE EVENT DATE: 20240501
